FAERS Safety Report 11391352 (Version 1)
Quarter: 2015Q3

REPORT INFORMATION
  Report Type: Spontaneous
  Country: SG (occurrence: None)
  Receive Date: 20150813
  Receipt Date: 20150813
  Transmission Date: 20151125
  Serious: Yes (Hospitalization, Other)
  Sender: FDA-Public Use
  Company Number: 2015HINLIT0651

PATIENT
  Age: 56 Year
  Sex: Male

DRUGS (5)
  1. LITHIUM. [Suspect]
     Active Substance: LITHIUM
     Indication: BIPOLAR DISORDER
  2. ENALAPRIL (ENALAPRIL) [Concomitant]
     Active Substance: ENALAPRIL
  3. LORAZEPAM (LORAZEPAM) [Concomitant]
     Active Substance: LORAZEPAM
  4. PROPRANOLOL [Concomitant]
     Active Substance: PROPRANOLOL\PROPRANOLOL HYDROCHLORIDE
  5. FLUVOXAMINE (FLUVOXAMINE) [Suspect]
     Active Substance: FLUVOXAMINE
     Indication: PRODUCT USED FOR UNKNOWN INDICATION

REACTIONS (9)
  - Hypotension [None]
  - Toxicity to various agents [None]
  - Lethargy [None]
  - Blood creatinine increased [None]
  - Bradycardia [None]
  - Drug interaction [None]
  - Anxiety [None]
  - Tremor [None]
  - Poor quality sleep [None]
